FAERS Safety Report 7125906-4 (Version None)
Quarter: 2010Q4

REPORT INFORMATION
  Report Type: 
  Country: None (occurrence: None)
  Receive Date: 20101112
  Receipt Date: 20101101
  Transmission Date: 20110411
  Serious: Yes (Life-Threatening, Other)
  Sender: FDA-Public Use
  Company Number: AXC-2010-000289

PATIENT
  Age: 13 Year
  Sex: Female

DRUGS (31)
  1. URSODIOL [Suspect]
     Indication: LIVER DISORDER
     Dosage: ORAL
     Route: 048
     Dates: start: 20090101
  2. MESALAMINE [Suspect]
     Indication: PRODUCT USED FOR UNKNOWN INDICATION
     Dosage: 60 MG/KG, QD
     Dates: start: 20090603, end: 20090804
  3. REMICADE [Suspect]
     Indication: CROHN'S DISEASE
     Dosage: 150 MG, SINGLE, INTRAVENOUS ; 150 MG, SINGLE, INTRAVENOUS ; 150 MG, SINGLE, INTRAVENOUS
     Route: 042
     Dates: start: 20091008, end: 20091008
  4. REMICADE [Suspect]
     Indication: CROHN'S DISEASE
     Dosage: 150 MG, SINGLE, INTRAVENOUS ; 150 MG, SINGLE, INTRAVENOUS ; 150 MG, SINGLE, INTRAVENOUS
     Route: 042
     Dates: start: 20091022, end: 20091022
  5. REMICADE [Suspect]
     Indication: CROHN'S DISEASE
     Dosage: 150 MG, SINGLE, INTRAVENOUS ; 150 MG, SINGLE, INTRAVENOUS ; 150 MG, SINGLE, INTRAVENOUS
     Route: 042
     Dates: start: 20091203, end: 20091203
  6. IMURAN [Suspect]
     Indication: CROHN'S DISEASE
     Dosage: 1 MG/KG, QD, ORAL ; 0.5 MG/KG, QD, ORAL ; 1 MG/KG, QD, ORAL
     Dates: start: 20090702, end: 20090813
  7. IMURAN [Suspect]
     Indication: CROHN'S DISEASE
     Dosage: 1 MG/KG, QD, ORAL ; 0.5 MG/KG, QD, ORAL ; 1 MG/KG, QD, ORAL
     Dates: start: 20090814, end: 20090820
  8. IMURAN [Suspect]
     Indication: CROHN'S DISEASE
     Dosage: 1 MG/KG, QD, ORAL ; 0.5 MG/KG, QD, ORAL ; 1 MG/KG, QD, ORAL
     Dates: start: 20090821, end: 20091105
  9. PREDONINE /00016201/ (PREDNISOLONE) UNKNOWN [Suspect]
     Indication: CROHN'S DISEASE
     Dosage: SEE IMAGE
     Route: 048
     Dates: start: 20090702, end: 20090702
  10. PREDONINE /00016201/ (PREDNISOLONE) UNKNOWN [Suspect]
     Indication: CROHN'S DISEASE
     Dosage: SEE IMAGE
     Route: 048
     Dates: start: 20090717, end: 20090723
  11. PREDONINE /00016201/ (PREDNISOLONE) UNKNOWN [Suspect]
     Indication: CROHN'S DISEASE
     Dosage: SEE IMAGE
     Route: 048
     Dates: start: 20090724, end: 20090803
  12. PREDONINE /00016201/ (PREDNISOLONE) UNKNOWN [Suspect]
     Indication: CROHN'S DISEASE
     Dosage: SEE IMAGE
     Route: 048
     Dates: start: 20090804, end: 20090906
  13. PREDONINE /00016201/ (PREDNISOLONE) UNKNOWN [Suspect]
     Indication: CROHN'S DISEASE
     Dosage: SEE IMAGE
     Route: 048
     Dates: start: 20090907, end: 20090917
  14. PREDONINE /00016201/ (PREDNISOLONE) UNKNOWN [Suspect]
     Indication: CROHN'S DISEASE
     Dosage: SEE IMAGE
     Route: 048
     Dates: start: 20090918, end: 20091022
  15. PREDONINE /00016201/ (PREDNISOLONE) UNKNOWN [Suspect]
     Indication: CROHN'S DISEASE
     Dosage: SEE IMAGE
     Route: 048
     Dates: start: 20091023, end: 20091106
  16. PREDONINE /00016201/ (PREDNISOLONE) UNKNOWN [Suspect]
     Indication: CROHN'S DISEASE
     Dosage: SEE IMAGE
     Route: 048
     Dates: start: 20091110, end: 20091124
  17. PREDONINE /00016201/ (PREDNISOLONE) UNKNOWN [Suspect]
     Indication: CROHN'S DISEASE
     Dosage: SEE IMAGE
     Route: 048
     Dates: start: 20091125
  18. UNSPECIFIED PPI [Concomitant]
  19. ELENTAL (MINERALS NOS, VITAMINS NOS) [Concomitant]
  20. SOLITAX-H (GLUCOSE, SODIUM CHLORIDE) [Concomitant]
  21. SOLITA-T 3G (CARBOHYDRATES NOS, POTASSIUM CHLORIDE, SODIUM CHLORIDE, S [Concomitant]
  22. AMIPAREN /01983901/ (ALANINE, AMINOACETIC ACID, ARGININE, ASPARTIC ACI [Concomitant]
  23. INTRALIPOS (GLCINE MAX SEED OIL) INFUSION [Concomitant]
  24. NOVOLOG [Concomitant]
  25. LEVOTHYROXINE SODIUM [Concomitant]
  26. ASPARA K /00466902/ (ASPARTATE POTASSIUM) [Concomitant]
  27. BIO-THREE (CLOSTRIDIUM BUTYRICUM COMBINED DRUG) TABLET [Concomitant]
  28. BLOSTAR M (FAMOTIDINE) [Concomitant]
  29. COLONEL (POLYCARBOPHIL CALCIUM) [Concomitant]
  30. ALFAROL (ALFACALCIDOL) [Concomitant]
  31. PENLES (LIDOCAINE) TAPE (INCLUDING POULTICE) [Concomitant]

REACTIONS (7)
  - CONDITION AGGRAVATED [None]
  - CONVULSION [None]
  - DEVICE RELATED INFECTION [None]
  - DIARRHOEA [None]
  - ENCEPHALOPATHY [None]
  - INFLUENZA [None]
  - RASH [None]
